FAERS Safety Report 11057830 (Version 2)
Quarter: 2015Q2

REPORT INFORMATION
  Report Type: Spontaneous
  Country: US (occurrence: US)
  Receive Date: 20150423
  Receipt Date: 20150430
  Transmission Date: 20150821
  Serious: Yes (Hospitalization)
  Sender: FDA-Public Use
  Company Number: US-HORIZON-ACT-0065-2015

PATIENT
  Age: 2 Year
  Sex: Male

DRUGS (10)
  1. VITAMIN D3 [Concomitant]
     Active Substance: CHOLECALCIFEROL
  2. KEPPRA [Concomitant]
     Active Substance: LEVETIRACETAM
  3. ACTIMMUNE [Suspect]
     Active Substance: INTERFERON GAMMA-1B
     Indication: CHRONIC GRANULOMATOUS DISEASE
     Route: 058
     Dates: start: 2013
  4. LISINOPRIL. [Concomitant]
     Active Substance: LISINOPRIL
  5. MICAFUNGIN [Concomitant]
     Active Substance: MICAFUNGIN
  6. BACTRIM [Concomitant]
     Active Substance: SULFAMETHOXAZOLE\TRIMETHOPRIM
  7. PREVACID [Concomitant]
     Active Substance: LANSOPRAZOLE
  8. URSODIOL. [Concomitant]
     Active Substance: URSODIOL
  9. LASIX [Concomitant]
     Active Substance: FUROSEMIDE
  10. TRILEPTAL [Concomitant]
     Active Substance: OXCARBAZEPINE

REACTIONS (3)
  - Diarrhoea [Unknown]
  - Pyrexia [Unknown]
  - Respiratory distress [Recovering/Resolving]
